FAERS Safety Report 12570360 (Version 3)
Quarter: 2016Q3

REPORT INFORMATION
  Report Type: Spontaneous
  Country: US (occurrence: US)
  Receive Date: 20160719
  Receipt Date: 20160829
  Transmission Date: 20161109
  Serious: Yes (Hospitalization)
  Sender: FDA-Public Use
  Company Number: US-VERTEX PHARMACEUTICALS-2016-004363

PATIENT
  Age: 32 Year
  Sex: Male

DRUGS (7)
  1. CAYSTON [Concomitant]
     Active Substance: AZTREONAM
  2. COLISTIN [Concomitant]
     Active Substance: COLISTIN
  3. PULMOZYME [Concomitant]
     Active Substance: DORNASE ALFA
  4. AQUADEKS [Concomitant]
     Active Substance: MINERALS\VITAMINS
  5. SODIUM CHLORIDE. [Concomitant]
     Active Substance: SODIUM CHLORIDE
  6. ORKAMBI [Suspect]
     Active Substance: IVACAFTOR\LUMACAFTOR
     Indication: CYSTIC FIBROSIS
     Dosage: 400-250 MG, BID
     Route: 048
     Dates: start: 20150917
  7. TOBRAMYCIN. [Concomitant]
     Active Substance: TOBRAMYCIN

REACTIONS (1)
  - Hospitalisation [Unknown]

NARRATIVE: CASE EVENT DATE: 20160708
